FAERS Safety Report 5318909-3 (Version None)
Quarter: 2007Q2

REPORT INFORMATION
  Report Type: 
  Country: None (occurrence: None)
  Receive Date: 20070504
  Receipt Date: 20070504
  Transmission Date: 20071010
  Serious: No
  Sender: FDA-Public Use
  Company Number: None

PATIENT
  Age: 50 Year
  Sex: Female
  Weight: 81.6475 kg

DRUGS (2)
  1. ZELNORM [Suspect]
     Indication: CONSTIPATION
     Dosage: 6MG 2 TIMES EACH DAY  UNSURE OF EXACT DURATION
     Dates: start: 20060425, end: 20070501
  2. ZELNORM [Suspect]
     Indication: IRRITABLE BOWEL SYNDROME
     Dosage: 6MG 2 TIMES EACH DAY  UNSURE OF EXACT DURATION
     Dates: start: 20060425, end: 20070501

REACTIONS (4)
  - CARDIAC MURMUR [None]
  - CHEST DISCOMFORT [None]
  - DYSPNOEA [None]
  - PAIN [None]
